FAERS Safety Report 5143349-X (Version None)
Quarter: 2006Q4

REPORT INFORMATION
  Report Type: 
  Country: None (occurrence: None)
  Receive Date: 20061103
  Receipt Date: 20061023
  Transmission Date: 20070319
  Serious: Yes (Other)
  Sender: FDA-Public Use
  Company Number: US-JNJFOC-20061005764

PATIENT
  Sex: Male
  Weight: 65.77 kg

DRUGS (7)
  1. DURAGESIC-100 [Suspect]
     Indication: PAIN
     Route: 062
  2. SOMA [Concomitant]
     Indication: MUSCLE CONTRACTURE
     Route: 048
  3. KLONOPIN [Concomitant]
     Indication: TREMOR
     Route: 048
  4. TOPAMAX [Concomitant]
     Indication: CONVULSION
     Route: 048
  5. HYDROXYZINE [Concomitant]
     Indication: PRURITUS
     Route: 048
  6. SINGULAIR [Concomitant]
     Indication: ASTHMA
     Route: 048
  7. ALBUTEROL [Concomitant]
     Indication: ASTHMA
     Route: 055

REACTIONS (5)
  - DIPLEGIA [None]
  - INJURY [None]
  - NERVE INJURY [None]
  - SENSORY LOSS [None]
  - SLEEP DISORDER [None]
